FAERS Safety Report 8516628-3 (Version None)
Quarter: 2012Q3

REPORT INFORMATION
  Report Type: 
  Country: None (occurrence: None)
  Receive Date: 20120718
  Receipt Date: 20120712
  Transmission Date: 20120928
  Serious: No
  Sender: FDA-Public Use
  Company Number: US-TEVA-348450USA

PATIENT
  Sex: Female
  Weight: 57.204 kg

DRUGS (1)
  1. AZILECT [Suspect]
     Indication: PARKINSON'S DISEASE
     Dosage: 1 MILLIGRAM;
     Dates: start: 20110810, end: 20111011

REACTIONS (1)
  - HALLUCINATION [None]
